FAERS Safety Report 7058899-9 (Version None)
Quarter: 2010Q4

REPORT INFORMATION
  Report Type: 
  Country: None (occurrence: None)
  Receive Date: 20101022
  Receipt Date: 20101014
  Transmission Date: 20110411
  Serious: Yes (Other)
  Sender: FDA-Public Use
  Company Number: IL-AMGEN GMBH-KDC413348

PATIENT
  Sex: Female

DRUGS (6)
  1. DENOSUMAB [Suspect]
     Indication: METASTASES TO BONE
     Dosage: UNK UNK, UNK
     Dates: start: 20090622, end: 20091110
  2. ENALAPRIL MALEATE [Concomitant]
     Dosage: 20 MG, BID
     Route: 048
     Dates: start: 20070601
  3. AMLODIPINE [Concomitant]
     Dosage: 10 MG, QD
     Route: 048
     Dates: start: 20070601
  4. CADEX                              /00639302/ [Concomitant]
     Dosage: 2 MG, QD
     Route: 048
     Dates: start: 20070601
  5. CALCIUM CARBONATE W/VITAMIN D      /00944201/ [Concomitant]
     Dosage: UNK UNK, BID
     Route: 048
     Dates: start: 20070819
  6. EXEMESTANE [Concomitant]
     Dosage: UNK
     Dates: start: 20090224

REACTIONS (1)
  - ABSCESS JAW [None]
